FAERS Safety Report 4741390-X (Version None)
Quarter: 2005Q3

REPORT INFORMATION
  Report Type: 
  Country: None (occurrence: None)
  Receive Date: 20050803
  Receipt Date: 20040817
  Transmission Date: 20060218
  Serious: Yes (Hospitalization)
  Sender: FDA-Public Use
  Company Number: 2004-08-1181

PATIENT
  Sex: Male
  Weight: 89 kg

DRUGS (5)
  1. INTRON A [Suspect]
     Indication: MALIGNANT MELANOMA
     Dosage: SEE IMAGE
     Route: 042
     Dates: start: 20040816, end: 20040826
  2. INTRON A [Suspect]
     Indication: MALIGNANT MELANOMA
     Dosage: SEE IMAGE
     Route: 042
     Dates: start: 20040816, end: 20040909
  3. INTRON A [Suspect]
     Indication: MALIGNANT MELANOMA
     Dosage: SEE IMAGE
     Route: 042
     Dates: start: 20040827, end: 20040909
  4. TYLENOL [Concomitant]
  5. CELEXA [Concomitant]

REACTIONS (7)
  - ALANINE AMINOTRANSFERASE INCREASED [None]
  - ASPARTATE AMINOTRANSFERASE INCREASED [None]
  - CHILLS [None]
  - DIZZINESS [None]
  - HYPOTENSION [None]
  - NAUSEA [None]
  - VOMITING [None]
